FAERS Safety Report 15013505 (Version 1)
Quarter: 2018Q2

REPORT INFORMATION
  Report Type: Spontaneous
  Country: US (occurrence: US)
  Receive Date: 20180522
  Receipt Date: 20180522
  Transmission Date: 20180711
  Serious: Yes (Death)
  Sender: FDA-Public Use
  Company Number: None

PATIENT
  Age: 88 Year
  Sex: Male

DRUGS (2)
  1. DOFETILIDE 250MCG [Suspect]
     Active Substance: DOFETILIDE
     Indication: ATRIAL FIBRILLATION
     Route: 048
     Dates: start: 20180118, end: 20180420
  2. DOFETILIDE 250MCG [Suspect]
     Active Substance: DOFETILIDE
     Indication: ATRIAL FLUTTER
     Route: 048
     Dates: start: 20180118, end: 20180420

REACTIONS (1)
  - Death [None]
